FAERS Safety Report 8304436-8 (Version None)
Quarter: 2012Q2

REPORT INFORMATION
  Report Type: 
  Country: None (occurrence: None)
  Receive Date: 20120423
  Receipt Date: 20120321
  Transmission Date: 20120825
  Serious: No
  Sender: FDA-Public Use
  Company Number: US-COVIDIEN/TYCO HEALTHCARE/MALLINCKRODT-T201201225

PATIENT

DRUGS (3)
  1. KLONOPIN [Concomitant]
     Indication: INSOMNIA
     Dosage: 0.1 MG, Q HS
     Route: 048
  2. CONCERTA [Concomitant]
     Indication: ATTENTION DEFICIT/HYPERACTIVITY DISORDER
     Dosage: 27 MG, Q AM
     Route: 048
  3. METHYLIN [Suspect]
     Indication: ATTENTION DEFICIT/HYPERACTIVITY DISORDER
     Dosage: 20 MG AT NOON, QD
     Route: 048

REACTIONS (4)
  - ANXIETY [None]
  - IMPULSE-CONTROL DISORDER [None]
  - CRYING [None]
  - DISTURBANCE IN ATTENTION [None]
